FAERS Safety Report 22212803 (Version 2)
Quarter: 2023Q4

REPORT INFORMATION
  Report Type: Spontaneous
  Country: US (occurrence: US)
  Receive Date: 20230414
  Receipt Date: 20231020
  Transmission Date: 20240109
  Serious: No
  Sender: FDA-Public Use
  Company Number: US-GLAXOSMITHKLINE-USCH2023AMR016161

PATIENT
  Age: 76 Year
  Sex: Female

DRUGS (5)
  1. ADVIL [Suspect]
     Active Substance: IBUPROFEN
     Indication: Product used for unknown indication
     Dosage: UNK
     Route: 065
  2. RINVOQ [Suspect]
     Active Substance: UPADACITINIB
     Indication: Rheumatoid arthritis
     Dosage: UNK
     Route: 048
     Dates: start: 20220730
  3. RINVOQ [Suspect]
     Active Substance: UPADACITINIB
     Dosage: UNK
     Route: 048
     Dates: start: 20200730
  4. TYLENOL [Suspect]
     Active Substance: ACETAMINOPHEN
     Indication: Product used for unknown indication
     Dosage: UNK
     Route: 065
  5. PRAVASTATIN SODIUM [Concomitant]
     Active Substance: PRAVASTATIN SODIUM
     Indication: Product used for unknown indication
     Dosage: 20 MG

REACTIONS (16)
  - Nasopharyngitis [Unknown]
  - Pyrexia [Unknown]
  - Influenza [Unknown]
  - Joint range of motion decreased [Unknown]
  - Unevaluable event [Unknown]
  - Weight increased [Unknown]
  - Alopecia [Unknown]
  - Dysgeusia [Unknown]
  - Endodontic procedure [Unknown]
  - Decreased appetite [Unknown]
  - Arthritis [Unknown]
  - Abdominal pain upper [Unknown]
  - Pain in extremity [Unknown]
  - Fall [Unknown]
  - Adverse drug reaction [Unknown]
  - Arthralgia [Recovering/Resolving]

NARRATIVE: CASE EVENT DATE: 20221202
